FAERS Safety Report 14188135 (Version 1)
Quarter: 2017Q4

REPORT INFORMATION
  Report Type: Spontaneous
  Country: US (occurrence: None)
  Receive Date: 20171113
  Receipt Date: 20171113
  Transmission Date: 20180321
  Serious: No
  Sender: FDA-Public Use
  Company Number: None

PATIENT
  Sex: Male

DRUGS (1)
  1. IBRANCE [Suspect]
     Active Substance: PALBOCICLIB
     Indication: BREAST CANCER MALE
     Dosage: 75MG DAILY FOR 21 DAYS, OFF FOR 7 DAYS ORAL
     Route: 048
     Dates: start: 20170703

REACTIONS (5)
  - Therapy change [None]
  - Drug ineffective [None]
  - Hypertension [None]
  - Fatigue [None]
  - Neoplasm progression [None]
